FAERS Safety Report 24579447 (Version 2)
Quarter: 2024Q4

REPORT INFORMATION
  Report Type: Report from Study
  Country: IN (occurrence: IN)
  Receive Date: 20241105
  Receipt Date: 20241125
  Transmission Date: 20250115
  Serious: Yes (Other)
  Sender: ROCHE
  Company Number: IN-ROCHE-10000121036

PATIENT
  Age: 32 Year
  Sex: Female

DRUGS (1)
  1. PHESGO [Suspect]
     Active Substance: HYALURONIDASE-ZZXF\PERTUZUMAB\TRASTUZUMAB
     Indication: Breast cancer
     Route: 058
     Dates: start: 20231010

REACTIONS (4)
  - Brain neoplasm malignant [Unknown]
  - Drug ineffective [Unknown]
  - Central nervous system lesion [Unknown]
  - Dizziness [Unknown]
